FAERS Safety Report 9849963 (Version 1)
Quarter: 2013Q4

REPORT INFORMATION
  Report Type: Spontaneous
  Country: US (occurrence: None)
  Receive Date: 20131226
  Receipt Date: 20131226
  Transmission Date: 20140711
  Serious: Yes (Hospitalization, Other)
  Sender: FDA-Public Use
  Company Number: PHEH2012US013809

PATIENT
  Age: 82 Year
  Sex: Female
  Weight: 56 kg

DRUGS (6)
  1. AFINITOR (RAD) UNKNOWN [Suspect]
     Indication: BENIGN NEOPLASM OF ISLETS OF LANGERHANS
     Dates: start: 20120330
  2. TYLENOL (PARACETAMOL) [Concomitant]
  3. DILTIAZEM (DILTIAZEM) [Concomitant]
  4. PROTONIX (PANTOPRAZOLE) [Concomitant]
  5. KCL (POTASSIUM CHLORIDE) [Concomitant]
  6. COUMADINE (WARFARIN SODIUM) [Concomitant]

REACTIONS (3)
  - Cystitis [None]
  - Pneumonia [None]
  - Decreased appetite [None]
